FAERS Safety Report 5658853-5 (Version None)
Quarter: 2008Q1

REPORT INFORMATION
  Report Type: 
  Country: None (occurrence: None)
  Receive Date: 20080310
  Receipt Date: 20070726
  Transmission Date: 20080703
  Serious: No
  Sender: FDA-Public Use
  Company Number: US-BAYER-200711309BCC

PATIENT
  Age: 85 Year
  Sex: Female
  Weight: 81 kg

DRUGS (4)
  1. ALEVE [Suspect]
     Indication: ARTHRALGIA
     Dosage: TOTAL DAILY DOSE: 220 MG  UNIT DOSE: 220 MG
     Route: 048
     Dates: start: 20070425
  2. CYMBALTA [Concomitant]
  3. VERELAN [Concomitant]
  4. XANAX [Concomitant]

REACTIONS (3)
  - ANXIETY [None]
  - INSOMNIA [None]
  - NERVOUSNESS [None]
